FAERS Safety Report 14397425 (Version 1)
Quarter: 2018Q1

REPORT INFORMATION
  Report Type: Spontaneous
  Country: US (occurrence: US)
  Receive Date: 20180116
  Receipt Date: 20180116
  Transmission Date: 20180509
  Serious: No
  Sender: FDA-Public Use
  Company Number: US-ALLERGAN-1731043US

PATIENT
  Age: 39 Year
  Sex: Female

DRUGS (5)
  1. BOTOX COSMETIC [Suspect]
     Active Substance: ONABOTULINUMTOXINA
     Dosage: 3 UNITS, SINGLE
     Route: 030
  2. BOTOX COSMETIC [Suspect]
     Active Substance: ONABOTULINUMTOXINA
     Dosage: 3 UNITS, SINGLE
     Route: 030
  3. BOTOX COSMETIC [Suspect]
     Active Substance: ONABOTULINUMTOXINA
     Dosage: 4 UNITS, SINGLE
     Route: 030
  4. BOTOX COSMETIC [Suspect]
     Active Substance: ONABOTULINUMTOXINA
     Dosage: 2 UNITS, SINGLE
     Route: 030
  5. BOTOX COSMETIC [Suspect]
     Active Substance: ONABOTULINUMTOXINA
     Indication: SKIN WRINKLING
     Dosage: 4 UNITS, SINGLE
     Route: 030

REACTIONS (11)
  - Ear pain [Unknown]
  - Herpes zoster [Unknown]
  - Eyelid ptosis [Unknown]
  - Eye swelling [Recovered/Resolved]
  - Vitreous floaters [Unknown]
  - Mucopolysaccharidosis II [Unknown]
  - Headache [Not Recovered/Not Resolved]
  - Eye pain [Unknown]
  - Photophobia [Unknown]
  - Hypogeusia [Unknown]
  - Swelling face [Unknown]

NARRATIVE: CASE EVENT DATE: 20170712
